FAERS Safety Report 5502597-7 (Version None)
Quarter: 2007Q4

REPORT INFORMATION
  Report Type: 
  Country: None (occurrence: None)
  Receive Date: 20071031
  Receipt Date: 20071022
  Transmission Date: 20080405
  Serious: Yes (Hospitalization)
  Sender: FDA-Public Use
  Company Number: PHBS2007IT17509

PATIENT
  Age: 82 Year
  Sex: Female

DRUGS (4)
  1. LOPRESSOR [Suspect]
     Indication: SUPRAVENTRICULAR TACHYCARDIA
     Dosage: 100 MG/DAY
     Route: 048
     Dates: start: 20060901, end: 20060901
  2. AMIODARONE [Suspect]
     Route: 048
     Dates: start: 20060901, end: 20060920
  3. TORVAST [Suspect]
     Dates: start: 20030101, end: 20070920
  4. ASPIRIN [Concomitant]

REACTIONS (2)
  - OBLITERATIVE BRONCHIOLITIS [None]
  - PNEUMONIA [None]
